FAERS Safety Report 5864871-4 (Version None)
Quarter: 2008Q3

REPORT INFORMATION
  Report Type: 
  Country: None (occurrence: None)
  Receive Date: 20080829
  Receipt Date: 20080723
  Transmission Date: 20090109
  Serious: No
  Sender: FDA-Public Use
  Company Number: US-ABBOTT-08P-163-0465130-00

PATIENT
  Sex: Female
  Weight: 78.996 kg

DRUGS (6)
  1. SIMCOR [Suspect]
     Indication: BLOOD CHOLESTEROL INCREASED
     Dosage: 1000/20 MG
     Route: 048
     Dates: start: 20080625
  2. FENOFIBRATE [Concomitant]
     Indication: BLOOD CHOLESTEROL
     Route: 048
  3. GLIPIZIDE [Concomitant]
     Indication: DIABETES MELLITUS
     Route: 048
  4. ENFORGE [Concomitant]
     Indication: BLOOD PRESSURE
     Dosage: 10/320 MG
     Route: 048
  5. SITAGLIPTIN PHOSPHATE [Concomitant]
     Indication: BLOOD GLUCOSE ABNORMAL
     Route: 048
  6. EL THYROXINE [Concomitant]
     Indication: THYROID DISORDER
     Route: 048

REACTIONS (5)
  - BURNING SENSATION [None]
  - DYSPEPSIA [None]
  - FEELING HOT [None]
  - PARAESTHESIA [None]
  - PRURITUS [None]
